FAERS Safety Report 16189206 (Version 1)
Quarter: 2019Q2

REPORT INFORMATION
  Report Type: Spontaneous
  Country: NL (occurrence: ES)
  Receive Date: 20190412
  Receipt Date: 20190412
  Transmission Date: 20190711
  Serious: Yes (Other)
  Sender: FDA-Public Use
  Company Number: ES-FRESENIUS KABI-FK201903771

PATIENT
  Sex: Female

DRUGS (3)
  1. ROCURONIUM [Suspect]
     Active Substance: ROCURONIUM BROMIDE
     Indication: NEUROMUSCULAR BLOCKADE
     Dosage: 150 MILLIGRAM IN TOTAL
     Route: 065
  2. SUGAMMADEX SODIUM [Suspect]
     Active Substance: SUGAMMADEX SODIUM
     Indication: NEUROMUSCULAR BLOCKADE REVERSAL
     Dosage: DOSE LOWER THAN CORRESPONDING ONE
     Route: 065
  3. SUGAMMADEX SODIUM [Suspect]
     Active Substance: SUGAMMADEX SODIUM
     Route: 065

REACTIONS (3)
  - Incorrect dose administered [Unknown]
  - Recurrence of neuromuscular blockade [Unknown]
  - Respiratory depression [Unknown]
